FAERS Safety Report 23866317 (Version 1)
Quarter: 2024Q2

REPORT INFORMATION
  Report Type: Spontaneous
  Country: IL (occurrence: None)
  Receive Date: 20240517
  Receipt Date: 20240517
  Transmission Date: 20240716
  Serious: Yes (Life-Threatening, Other)
  Sender: FDA-Public Use
  Company Number: 2024A114325

PATIENT
  Age: 53 Year
  Sex: Male

DRUGS (6)
  1. CRESTOR [Suspect]
     Active Substance: ROSUVASTATIN CALCIUM
     Route: 048
  2. ASPIRIN [Concomitant]
     Active Substance: ASPIRIN
  3. OMEPRAZOLE [Concomitant]
     Active Substance: DONEPEZIL HYDROCHLORIDE\OMEPRAZOLE\OMEPRAZOLE MAGNESIUM
  4. OZEMPIC [Concomitant]
     Active Substance: SEMAGLUTIDE
  5. PREDNISONE [Concomitant]
     Active Substance: PREDNISONE
  6. INSULIN TREGLUDEC [Concomitant]

REACTIONS (1)
  - Rhabdomyolysis [Unknown]
